FAERS Safety Report 20703494 (Version 1)
Quarter: 2022Q2

REPORT INFORMATION
  Report Type: Report from Study
  Country: US (occurrence: US)
  Receive Date: 20220413
  Receipt Date: 20220413
  Transmission Date: 20220721
  Serious: Yes (Death, Other)
  Sender: FDA-Public Use
  Company Number: US-GILEAD-2022-0577334

PATIENT
  Age: 37 Year
  Sex: Female

DRUGS (17)
  1. AZTREONAM LYSINE [Suspect]
     Active Substance: AZTREONAM LYSINE
     Indication: Bronchiectasis
     Dosage: 1 VIAL, 28/28
     Route: 055
     Dates: start: 20201003
  2. ACYCLOVIR [Concomitant]
     Active Substance: ACYCLOVIR
  3. ALBUTEROL [Concomitant]
     Active Substance: ALBUTEROL
  4. AZITHROMYCIN [Concomitant]
     Active Substance: AZITHROMYCIN
  5. BENZONATATE [Concomitant]
     Active Substance: BENZONATATE
  6. CETIRIZINE HYDROCHLORIDE [Concomitant]
     Active Substance: CETIRIZINE HYDROCHLORIDE
  7. FLUCONAZOLE [Concomitant]
     Active Substance: FLUCONAZOLE
  8. FUROSEMIDE [Concomitant]
     Active Substance: FUROSEMIDE
  9. GAMUNEX-C [Concomitant]
     Active Substance: HUMAN IMMUNOGLOBULIN G
  10. ITRACONAZOLE [Concomitant]
     Active Substance: ITRACONAZOLE
  11. METHYLPREDNISOLONE [Concomitant]
     Active Substance: METHYLPREDNISOLONE
  12. PANTOPRAZOLE [Concomitant]
     Active Substance: PANTOPRAZOLE
  13. PREDNISONE [Concomitant]
     Active Substance: PREDNISONE
  14. SODIUM CHLORIDE [Concomitant]
     Active Substance: SODIUM CHLORIDE
  15. SPIRONOLACTONE [Concomitant]
     Active Substance: SPIRONOLACTONE
  16. URSODIOL [Concomitant]
     Active Substance: URSODIOL
  17. TOBRAMYCIN [Concomitant]
     Active Substance: TOBRAMYCIN

REACTIONS (2)
  - Death [Fatal]
  - Off label use [Recovered/Resolved]

NARRATIVE: CASE EVENT DATE: 20220301
